FAERS Safety Report 8101654-9 (Version None)
Quarter: 2012Q1

REPORT INFORMATION
  Report Type: 
  Country: None (occurrence: None)
  Receive Date: 20120129
  Receipt Date: 20111012
  Transmission Date: 20120608
  Serious: No
  Sender: FDA-Public Use
  Company Number: US-ABBOTT-11P-163-0863326-00

PATIENT
  Sex: Female
  Weight: 68.1 kg

DRUGS (6)
  1. LANTUS [Concomitant]
     Indication: DIABETES MELLITUS
     Route: 058
  2. XALATAN [Concomitant]
     Indication: GLAUCOMA
     Dosage: OU AT BEDTIME
  3. TACLONEX [Concomitant]
     Indication: PSORIASIS
     Route: 061
  4. HUMIRA [Suspect]
     Indication: PSORIASIS
     Route: 058
     Dates: start: 20110721, end: 20110721
  5. HUMIRA [Suspect]
     Route: 058
     Dates: start: 20110728
  6. DIOVAN [Concomitant]
     Indication: HYPERTENSION

REACTIONS (2)
  - PSORIASIS [None]
  - SKIN LESION [None]
